FAERS Safety Report 15080355 (Version 2)
Quarter: 2019Q4

REPORT INFORMATION
  Report Type: Spontaneous
  Country: PT (occurrence: PT)
  Receive Date: 20180628
  Receipt Date: 20191018
  Transmission Date: 20200122
  Serious: Yes (Other)
  Sender: FDA-Public Use
  Company Number: PT-TEVA-2018-PT-913169

PATIENT
  Age: 78 Year
  Sex: Female
  Weight: 61 kg

DRUGS (1)
  1. OLFEN [DICLOFENAC] [Suspect]
     Active Substance: DICLOFENAC
     Indication: MYALGIA
     Dosage: 1 12/12HORAS PLASTER
     Route: 061
     Dates: start: 20180508, end: 20180510

REACTIONS (1)
  - Rash erythematous [Unknown]

NARRATIVE: CASE EVENT DATE: 20180508
